FAERS Safety Report 6738865-0 (Version None)
Quarter: 2010Q2

REPORT INFORMATION
  Report Type: 
  Country: None (occurrence: None)
  Receive Date: 20100520
  Receipt Date: 20100510
  Transmission Date: 20101027
  Serious: Yes (Death)
  Sender: FDA-Public Use
  Company Number: 1000013873

PATIENT
  Age: 69 Year
  Sex: Female

DRUGS (2)
  1. MEMANTINE HCL [Suspect]
     Dosage: (10 MG), ORAL
     Route: 048
  2. PLAVIX [Concomitant]

REACTIONS (1)
  - CEREBRAL HAEMORRHAGE [None]
